FAERS Safety Report 16661445 (Version 1)
Quarter: 2019Q3

REPORT INFORMATION
  Report Type: Spontaneous
  Country: US (occurrence: US)
  Receive Date: 20190619
  Receipt Date: 20190619
  Transmission Date: 20191004
  Serious: Yes (Hospitalization)
  Sender: FDA-Public Use
  Company Number: None

PATIENT
  Age: 63 Year
  Sex: Female

DRUGS (3)
  1. MIRENA [Concomitant]
     Active Substance: LEVONORGESTREL
  2. LIALDA [Concomitant]
     Active Substance: MESALAMINE
  3. MERCAPTOPURINE 50MG TAB [Suspect]
     Active Substance: MERCAPTOPURINE
     Indication: COLITIS ULCERATIVE
     Route: 048
     Dates: start: 20171017

REACTIONS (5)
  - Urinary tract infection [None]
  - Kidney infection [None]
  - Product dose omission [None]
  - Memory impairment [None]
  - Cystitis [None]

NARRATIVE: CASE EVENT DATE: 20190606
